FAERS Safety Report 10494231 (Version 1)
Quarter: 2014Q3

REPORT INFORMATION
  Report Type: Spontaneous
  Country: US (occurrence: None)
  Receive Date: 20140815
  Receipt Date: 20140815
  Transmission Date: 20150326
  Serious: Yes (Other)
  Sender: FDA-Public Use
  Company Number: ADR-2014-00092

PATIENT
  Sex: Male

DRUGS (5)
  1. DILAUDID [Suspect]
     Active Substance: HYDROMORPHONE HYDROCHLORIDE
  2. FENTANYL. [Suspect]
     Active Substance: FENTANYL
  3. BUPIVACAINE [Suspect]
     Active Substance: BUPIVACAINE
  4. CLONIDINE. [Suspect]
     Active Substance: CLONIDINE
  5. COMPOUNDED BACLOFEN INTRATHECAL [Suspect]
     Active Substance: BACLOFEN
     Indication: PAIN

REACTIONS (5)
  - Overdose [None]
  - Underdose [None]
  - Dyspnoea [None]
  - Somnolence [None]
  - Drug withdrawal syndrome [None]
